FAERS Safety Report 19215355 (Version 1)
Quarter: 2021Q2

REPORT INFORMATION
  Report Type: Report from Study
  Country: US (occurrence: US)
  Receive Date: 20210505
  Receipt Date: 20210505
  Transmission Date: 20210717
  Serious: Yes (Other)
  Sender: FDA-Public Use
  Company Number: NVSC2021US094846

PATIENT
  Sex: Female

DRUGS (1)
  1. PIQRAY [Suspect]
     Active Substance: ALPELISIB
     Indication: BREAST CANCER
     Dosage: 300 MG, QD
     Route: 048
     Dates: start: 20210402

REACTIONS (8)
  - Back pain [Unknown]
  - Metastasis [Unknown]
  - Sleep disorder [Unknown]
  - Confusional state [Unknown]
  - Drug intolerance [Unknown]
  - Arthralgia [Unknown]
  - Urinary tract infection [Unknown]
  - Fatigue [Unknown]
